FAERS Safety Report 19094425 (Version 1)
Quarter: 2021Q2

REPORT INFORMATION
  Report Type: Spontaneous
  Country: DE (occurrence: DE)
  Receive Date: 20210405
  Receipt Date: 20210405
  Transmission Date: 20210717
  Serious: No
  Sender: FDA-Public Use
  Company Number: DE-JAZZ-2020-DE-012642

PATIENT
  Age: 45 Year
  Sex: Male

DRUGS (3)
  1. SUNOSI [Suspect]
     Active Substance: SOLRIAMFETOL
     Dosage: 75 MILLIGRAM, 3.5 WEEKS
  2. SUNOSI [Suspect]
     Active Substance: SOLRIAMFETOL
     Indication: SLEEP APNOEA SYNDROME
     Dosage: 37.5 MILLIGRAM, 3 DAYS
     Dates: start: 202006
  3. SUNOSI [Suspect]
     Active Substance: SOLRIAMFETOL
     Dosage: 150 MILLIGRAM, 3.5 WEEKS

REACTIONS (7)
  - Nausea [Unknown]
  - Therapeutic response decreased [Unknown]
  - Dyspepsia [Unknown]
  - Hyperhidrosis [Unknown]
  - Dizziness [Unknown]
  - Disturbance in attention [Unknown]
  - Palpitations [Unknown]
